FAERS Safety Report 13350080 (Version 1)
Quarter: 2017Q1

REPORT INFORMATION
  Report Type: Spontaneous
  Country: GB (occurrence: GB)
  Receive Date: 20170320
  Receipt Date: 20170320
  Transmission Date: 20170429
  Serious: Yes (Other)
  Sender: FDA-Public Use
  Company Number: GB-TEVA-749186ACC

PATIENT
  Age: 26 Year
  Sex: Female
  Weight: 116 kg

DRUGS (6)
  1. DISULFIRAM. [Suspect]
     Active Substance: DISULFIRAM
     Dates: start: 20170227
  2. CHLORDIAZEPOXIDE. [Concomitant]
     Active Substance: CHLORDIAZEPOXIDE
     Dates: start: 20170113, end: 20170118
  3. ACAMPROSATE CALCIUM. [Suspect]
     Active Substance: ACAMPROSATE CALCIUM
     Dosage: 6 DOSAGE FORMS DAILY;
     Dates: start: 20170224
  4. MIRTAZAPINE. [Concomitant]
     Active Substance: MIRTAZAPINE
     Dosage: 2 DOSAGE FORMS DAILY;
     Dates: start: 20170104, end: 20170201
  5. FLUMETASONE [Concomitant]
     Dosage: 4 GTT DAILY;
     Dates: start: 20170104, end: 20170116
  6. SOFRADEX [Concomitant]
     Active Substance: DEXAMETHASONE\FRAMYCETIN SULFATE\GRAMICIDIN
     Dosage: 8 DOSAGE FORMS DAILY;
     Dates: start: 20170104, end: 20170109

REACTIONS (1)
  - Liver function test increased [Recovered/Resolved]

NARRATIVE: CASE EVENT DATE: 20170227
